FAERS Safety Report 5776882-8 (Version None)
Quarter: 2008Q2

REPORT INFORMATION
  Report Type: 
  Country: None (occurrence: None)
  Receive Date: 20080618
  Receipt Date: 20080609
  Transmission Date: 20081010
  Serious: Yes (Hospitalization)
  Sender: FDA-Public Use
  Company Number: A0706700A

PATIENT
  Age: 77 Year

DRUGS (3)
  1. ROSIGLITAZONE [Suspect]
     Dosage: 2MG PER DAY
     Route: 048
     Dates: start: 20070607
  2. LORAZEPAM [Concomitant]
  3. RIVASTIGMINE TARTRATE [Concomitant]

REACTIONS (9)
  - ANOREXIA [None]
  - CONFUSIONAL STATE [None]
  - DEHYDRATION [None]
  - DIZZINESS [None]
  - ELECTROLYTE IMBALANCE [None]
  - FALL [None]
  - ORTHOSTATIC HYPOTENSION [None]
  - URINARY INCONTINENCE [None]
  - URINARY TRACT INFECTION [None]
